FAERS Safety Report 4939514-4 (Version None)
Quarter: 2006Q1

REPORT INFORMATION
  Report Type: 
  Country: None (occurrence: None)
  Receive Date: 20060306
  Receipt Date: 20060228
  Transmission Date: 20060701
  Serious: Yes (Hospitalization)
  Sender: FDA-Public Use
  Company Number: 2006-01-0844

PATIENT
  Age: 66 Year
  Sex: Female
  Weight: 80 kg

DRUGS (8)
  1. TEMODAL [Suspect]
     Indication: GLIOBLASTOMA
     Dosage: 140 MG QD ORAL
     Route: 048
     Dates: start: 20051014, end: 20051121
  2. RADIATION THERAPY [Concomitant]
  3. BACTRIM DS [Concomitant]
  4. SOLUPRED [Concomitant]
  5. METFORMIN [Concomitant]
  6. ZOLOFT [Concomitant]
  7. AMLOR [Concomitant]
  8. ATENOLOL [Concomitant]

REACTIONS (1)
  - FEBRILE BONE MARROW APLASIA [None]
